FAERS Safety Report 7982533-4 (Version None)
Quarter: 2011Q4

REPORT INFORMATION
  Report Type: 
  Country: None (occurrence: None)
  Receive Date: 20111215
  Receipt Date: 20111202
  Transmission Date: 20120403
  Serious: Yes (Hospitalization, Other)
  Sender: FDA-Public Use
  Company Number: PHHY2011JP91220

PATIENT
  Sex: Female
  Weight: 49 kg

DRUGS (7)
  1. METHOTREXATE [Concomitant]
  2. LEVOFLOXACIN [Concomitant]
     Indication: PYREXIA
     Dosage: 300 MG, UNK
     Route: 048
     Dates: start: 20100303, end: 20100312
  3. RIMATIL [Concomitant]
     Indication: PSORIATIC ARTHROPATHY
     Dosage: 200 MG,
     Route: 048
     Dates: start: 20091201
  4. NEORAL [Suspect]
     Indication: PSORIASIS
     Dosage: 150 MG, DAILY
     Route: 048
     Dates: start: 20090701, end: 20100308
  5. LOXONIN [Concomitant]
     Indication: PYREXIA
     Dosage: 180 MG
     Route: 048
     Dates: start: 20100312
  6. NEORAL [Suspect]
     Indication: PSORIATIC ARTHROPATHY
     Dosage: 100 MG, DAILY
     Route: 048
     Dates: start: 20060201
  7. SULFASALAZINE [Concomitant]
     Indication: ARTHRALGIA
     Dosage: 1 G, DAILY
     Route: 048
     Dates: start: 20100312

REACTIONS (12)
  - ARTHROPATHY [None]
  - ERYTHEMA [None]
  - PSORIATIC ARTHROPATHY [None]
  - DENTAL CARIES [None]
  - ARTHRALGIA [None]
  - JOINT SWELLING [None]
  - PSORIASIS [None]
  - LYMPHADENOPATHY [None]
  - RADICULAR CYST [None]
  - JAW CYST [None]
  - SKIN DISORDER [None]
  - PYREXIA [None]
